FAERS Safety Report 14772523 (Version 1)
Quarter: 2018Q2

REPORT INFORMATION
  Report Type: Spontaneous
  Country: FR (occurrence: FR)
  Receive Date: 20180418
  Receipt Date: 20180418
  Transmission Date: 20180711
  Serious: Yes (Other)
  Sender: FDA-Public Use
  Company Number: FR-MERCK KGAA-2045909

PATIENT
  Age: 47 Year
  Sex: Female

DRUGS (1)
  1. NOVOTHYROX [Suspect]
     Active Substance: LEVOTHYROXINE SODIUM
     Indication: THYROIDITIS
     Dates: start: 201703

REACTIONS (20)
  - Loss of consciousness [None]
  - Fall [None]
  - Fatigue [None]
  - Partner stress [None]
  - Social problem [None]
  - Headache [Not Recovered/Not Resolved]
  - Head discomfort [Not Recovered/Not Resolved]
  - Hot flush [Not Recovered/Not Resolved]
  - Tendonitis [Not Recovered/Not Resolved]
  - Loss of personal independence in daily activities [None]
  - Musculoskeletal stiffness [Not Recovered/Not Resolved]
  - Impaired driving ability [None]
  - Paraesthesia [None]
  - Periarthritis [Not Recovered/Not Resolved]
  - Impatience [None]
  - Personal relationship issue [None]
  - Decreased activity [None]
  - Ventricular hyperkinesia [None]
  - Irritability [None]
  - Malaise [None]

NARRATIVE: CASE EVENT DATE: 201704
